FAERS Safety Report 13610641 (Version 3)
Quarter: 2017Q3

REPORT INFORMATION
  Report Type: Report from Study
  Country: US (occurrence: US)
  Receive Date: 20170605
  Receipt Date: 20170913
  Transmission Date: 20171127
  Serious: Yes (Hospitalization, Other)
  Sender: FDA-Public Use
  Company Number: US-AMGEN-USASL2017083569

PATIENT
  Age: 64 Year
  Sex: Male

DRUGS (2)
  1. DECADRON [Suspect]
     Active Substance: DEXAMETHASONE
     Indication: PRODUCT USED FOR UNKNOWN INDICATION
     Dosage: UNK
     Route: 065
  2. NPLATE [Suspect]
     Active Substance: ROMIPLOSTIM
     Indication: IMMUNE THROMBOCYTOPENIC PURPURA
     Dosage: UNK, QMO
     Route: 065

REACTIONS (13)
  - Fatigue [Unknown]
  - Dizziness [Unknown]
  - Dyspnoea [Recovering/Resolving]
  - Off label use [Unknown]
  - Chemotherapy [Unknown]
  - Drug effect incomplete [Unknown]
  - Unevaluable event [Unknown]
  - Balance disorder [Unknown]
  - Feeling abnormal [Unknown]
  - Platelet count abnormal [Unknown]
  - Pneumonia [Unknown]
  - Injection site pain [Unknown]
  - Asthenia [Recovering/Resolving]

NARRATIVE: CASE EVENT DATE: 201704
